FAERS Safety Report 5545791-1 (Version None)
Quarter: 2007Q4

REPORT INFORMATION
  Report Type: 
  Country: None (occurrence: None)
  Receive Date: 20071211
  Receipt Date: 20070130
  Transmission Date: 20080405
  Serious: No
  Sender: FDA-Public Use
  Company Number: US-AMGEN-KDL209226

PATIENT
  Sex: Female

DRUGS (4)
  1. ENBREL [Suspect]
     Indication: PSORIATIC ARTHROPATHY
     Route: 058
     Dates: start: 20060907
  2. ENBREL [Suspect]
     Indication: PSORIASIS
  3. ARAVA [Concomitant]
     Route: 048
     Dates: start: 20060501
  4. METHOTREXATE [Concomitant]
     Route: 058
     Dates: start: 20060501

REACTIONS (2)
  - INJECTION SITE IRRITATION [None]
  - THERAPEUTIC RESPONSE DECREASED [None]
